FAERS Safety Report 6394610-2 (Version None)
Quarter: 2009Q4

REPORT INFORMATION
  Report Type: 
  Country: None (occurrence: None)
  Receive Date: 20091009
  Receipt Date: 20090929
  Transmission Date: 20100525
  Serious: Yes (Other)
  Sender: FDA-Public Use
  Company Number: DE-ROCHE-659239

PATIENT
  Sex: Male
  Weight: 58 kg

DRUGS (5)
  1. CAPECITABINE [Suspect]
     Dosage: ROUTE:QS PLANNED, DOSAGE FORM ORAL.DOSE 825MG/M2 AND UNITS:250MG/D,FREQUENCY:DAY
     Route: 050
     Dates: start: 20090827, end: 20090908
  2. CAPECITABINE [Suspect]
     Route: 050
     Dates: start: 20090917
  3. BEVACIZUMAB [Suspect]
     Dosage: ROUTE:OS PLANNED,DOSAGE FORM:INTRAVENOUS,FREQUENCY:OS PLANNED.DOSE:5MG/KG,UNITS:300MG
     Route: 050
     Dates: start: 20090827, end: 20090908
  4. BEVACIZUMAB [Suspect]
     Route: 050
     Dates: start: 20090911
  5. OXALIPLATIN [Suspect]
     Dosage: ROUTE:OS PLANNED,DOSAGE FORM:INTRAVENOUS, FREQUENCY:QS PLANNED.DOSE:50MG/M2,UNITS:80MG
     Route: 050
     Dates: start: 20090827

REACTIONS (1)
  - ANGINA PECTORIS [None]
